FAERS Safety Report 10413519 (Version 1)
Quarter: 2014Q2

REPORT INFORMATION
  Report Type: Spontaneous
  Country: US (occurrence: None)
  Receive Date: 20140530
  Receipt Date: 20140530
  Transmission Date: 20141212
  Serious: No
  Sender: FDA-Public Use
  Company Number: 226636

PATIENT
  Sex: Female

DRUGS (1)
  1. PICATO (INGENOL MEBUTATE) (0.015 %, GEL) [Suspect]
     Indication: ACTINIC KERATOSIS
     Dates: start: 20140204, end: 20140204

REACTIONS (10)
  - Application site pain [None]
  - Application site pain [None]
  - Application site vesicles [None]
  - Application site swelling [None]
  - Application site pain [None]
  - Application site exfoliation [None]
  - Application site dryness [None]
  - Application site erythema [None]
  - Application site discolouration [None]
  - Incorrect drug administration duration [None]
